FAERS Safety Report 8414993-9 (Version None)
Quarter: 2012Q2

REPORT INFORMATION
  Report Type: 
  Country: None (occurrence: None)
  Receive Date: 20120606
  Receipt Date: 20120315
  Transmission Date: 20120825
  Serious: No
  Sender: FDA-Public Use
  Company Number: US-GLAXOSMITHKLINE-A0969893A

PATIENT
  Age: 45 Year
  Sex: Female

DRUGS (3)
  1. LAMICTAL [Suspect]
     Indication: BIPOLAR DISORDER
     Dosage: 50MG PER DAY
     Route: 048
     Dates: start: 20120210
  2. NO CONCURRENT MEDICATION [Concomitant]
  3. LAMOTRIGINE [Suspect]
     Indication: BIPOLAR DISORDER
     Dosage: 100MG PER DAY
     Route: 048
     Dates: start: 20120311

REACTIONS (1)
  - CONTUSION [None]
